FAERS Safety Report 9412952 (Version 1)
Quarter: 2013Q3

REPORT INFORMATION
  Report Type: Spontaneous
  Country: US (occurrence: US)
  Receive Date: 20130722
  Receipt Date: 20130722
  Transmission Date: 20140515
  Serious: No
  Sender: FDA-Public Use
  Company Number: US-BAYER-2013-088628

PATIENT
  Age: 61 Year
  Sex: Female
  Weight: 61.22 kg

DRUGS (2)
  1. ALEVE TABLET [Suspect]
     Indication: BACK PAIN
     Dosage: 2 DF, BID
     Route: 048
     Dates: start: 201307, end: 20130716
  2. WELLBUTRIN [Concomitant]

REACTIONS (2)
  - Contusion [Not Recovered/Not Resolved]
  - Extra dose administered [None]
